FAERS Safety Report 9845249 (Version 1)
Quarter: 2014Q1

REPORT INFORMATION
  Report Type: Spontaneous
  Country: US (occurrence: None)
  Receive Date: 20140122
  Receipt Date: 20140122
  Transmission Date: 20141002
  Serious: Yes (Hospitalization)
  Sender: FDA-Public Use
  Company Number: UTC-043022

PATIENT
  Age: 58 Year
  Sex: Female
  Weight: 98.18 kg

DRUGS (2)
  1. REMODULIN [Suspect]
     Indication: COR PULMONALE CHRONIC
     Dosage: 129.6 UG/KG (0.09 IG/KG, 1 IN 1MIN), SUBCUTANEOUS
     Dates: start: 20130515
  2. ADCIRCA (TADALAFIL) (UNKNOWN) [Concomitant]

REACTIONS (3)
  - Gastrointestinal haemorrhage [None]
  - Hypotension [None]
  - Respiratory distress [None]
